FAERS Safety Report 10066269 (Version 4)
Quarter: 2014Q2

REPORT INFORMATION
  Report Type: Report from Study
  Country: IN (occurrence: IN)
  Receive Date: 20140408
  Receipt Date: 20140506
  Transmission Date: 20141212
  Serious: Yes (Other)
  Sender: FDA-Public Use
  Company Number: PHHY2013IN031771

PATIENT
  Sex: Male

DRUGS (2)
  1. GLIVEC [Suspect]
     Indication: CHRONIC MYELOID LEUKAEMIA
     Dosage: 800 MG, UNK
  2. GLIVEC [Suspect]
     Dosage: UNK UKN, UNK

REACTIONS (2)
  - Tuberculosis [Unknown]
  - No therapeutic response [Unknown]
